FAERS Safety Report 21168085 (Version 1)
Quarter: 2022Q3

REPORT INFORMATION
  Report Type: Spontaneous
  Country: US (occurrence: US)
  Receive Date: 20220803
  Receipt Date: 20220803
  Transmission Date: 20221027
  Serious: No
  Sender: FDA-Public Use
  Company Number: US-ORGANON-O2208USA000089

PATIENT
  Sex: Female
  Weight: 73.469 kg

DRUGS (1)
  1. NEXPLANON [Suspect]
     Active Substance: ETONOGESTREL
     Indication: Contraception
     Dosage: 1 IMPLANT OF 68MG, FOR 3 YEARS, IMPLANTED IN ARM
     Route: 059
     Dates: start: 20211227

REACTIONS (3)
  - Menometrorrhagia [Not Recovered/Not Resolved]
  - Back pain [Unknown]
  - Product prescribing issue [Unknown]
